FAERS Safety Report 6408481-9 (Version None)
Quarter: 2009Q4

REPORT INFORMATION
  Report Type: 
  Country: None (occurrence: None)
  Receive Date: 20091021
  Receipt Date: 20091016
  Transmission Date: 20100525
  Serious: Yes (Hospitalization)
  Sender: FDA-Public Use
  Company Number: FR-TEVA-212594ISR

PATIENT
  Age: 84 Year
  Sex: Male
  Weight: 77 kg

DRUGS (12)
  1. FLUOROURACIL [Suspect]
     Indication: COLORECTAL CANCER
     Dates: start: 20060314, end: 20080820
  2. IRINOTECAN HCL [Suspect]
     Indication: COLORECTAL CANCER
     Dates: start: 20060314, end: 20080819
  3. FOLINIC ACID [Suspect]
     Indication: COLORECTAL CANCER
     Dates: start: 20060314, end: 20080820
  4. FORMOTEROL FUMARATE [Concomitant]
  5. ALBUTEROL [Concomitant]
  6. FLUTICASONE PROPIONATE [Concomitant]
  7. TRIMETAZIDINE HYDROCHLORIDE [Concomitant]
  8. DUTASTERIDE [Concomitant]
  9. FUROSEMIDE [Concomitant]
  10. POTASSIUM CHLORIDE [Concomitant]
  11. AMIODARONE HYDROCHLORIDE [Concomitant]
  12. CEFTRIAXONE [Concomitant]

REACTIONS (2)
  - ACUTE CORONARY SYNDROME [None]
  - DYSPNOEA [None]
